FAERS Safety Report 19169783 (Version 1)
Quarter: 2021Q2

REPORT INFORMATION
  Report Type: Spontaneous
  Country: NL (occurrence: NL)
  Receive Date: 20210422
  Receipt Date: 20210422
  Transmission Date: 20210717
  Serious: Yes (Other)
  Sender: FDA-Public Use
  Company Number: NL-TEVA-2021-NL-1903014

PATIENT
  Age: 79 Year
  Sex: Male
  Weight: 88 kg

DRUGS (9)
  1. CLOPIDOGREL TABLET   75MG / BRAND NAME NOT SPECIFIED [Concomitant]
     Active Substance: CLOPIDOGREL BISULFATE
     Dosage: 75 MG (MILLIGRAM),THERAPY START DATE ASKU, THERAPY END DATE ASKU
  2. AMOXICILLINE/CLAVULAANZUUR TABLET 500/125MG / BRAND NAME NOT SPECIFIED [Suspect]
     Active Substance: AMOXICILLIN\CLAVULANIC ACID
     Indication: ERYSIPELAS
     Dosage: 3 DOSAGE FORMS DAILY; THERAPY END DATE ASKU
     Route: 065
     Dates: start: 20210316
  3. METOPROLOL TABLET MGA 100MG (SUCCINAAT) / SELOKEEN ZOC 100 TABLET MGA [Interacting]
     Active Substance: METOPROLOL SUCCINATE
     Indication: ANGINA PECTORIS
  4. ISOSORBIDEDINITRAAT TABLET MGA 20MG / BRAND NAME NOT SPECIFIED [Concomitant]
     Dosage: THERAPY START DATE ASKU, THERAPY END DATE ASKU, 20MG
  5. METOPROLOL TABLET MGA 100MG (SUCCINAAT) / SELOKEEN ZOC 100 TABLET MGA [Interacting]
     Active Substance: METOPROLOL SUCCINATE
     Indication: ARRHYTHMIA
     Dosage: THERAPY START DATE ASKU, THERAPY END DATE ASKU
     Route: 065
  6. CANDESARTAN TABLET  4MG / BRAND NAME NOT SPECIFIED [Concomitant]
     Dosage: THERAPY START DATE ASKU, THERAPY END DATE ASKU, 4 MG (MILLIGRAM)
  7. ATORVASTATINE TABLET 40MG / BRAND NAME NOT SPECIFIED [Concomitant]
     Active Substance: ATORVASTATIN
     Dosage: THERAPY START DATE ASKU, THERAPY END DATE ASKU, 40 MG (MILLIGRAM)
  8. APIXABAN TABLET 5MG / ELIQUIS TABLET FILMOMHULD 5MG [Concomitant]
     Dosage: THERAPY START DATE ASKU, THERAPY END DATE ASKU, 5 MG (MILLIGRAM)
  9. DUTASTERIDE CAPSULE ZACHT 0,5MG / BRAND NAME NOT SPECIFIED [Concomitant]
     Active Substance: DUTASTERIDE
     Dosage: THERAPY START DATE ASKU, THERAPY END DATE ASKU, 0,5 MG (MILLIGRAM)

REACTIONS (4)
  - Arrhythmia [Recovered/Resolved]
  - Drug interaction [Unknown]
  - Therapeutic product effect decreased [Recovered/Resolved]
  - Dyspnoea [Recovered/Resolved]

NARRATIVE: CASE EVENT DATE: 20210316
